FAERS Safety Report 10224959 (Version 1)
Quarter: 2014Q2

REPORT INFORMATION
  Report Type: Spontaneous
  Country: IT (occurrence: IT)
  Receive Date: 20140609
  Receipt Date: 20140609
  Transmission Date: 20141212
  Serious: Yes (Hospitalization)
  Sender: FDA-Public Use
  Company Number: IT-TEVA-485360ISR

PATIENT
  Age: 34 Year
  Sex: Female

DRUGS (4)
  1. CARBOLITHIUM 300 MG [Suspect]
     Dosage: 6 GRAM DAILY;
     Route: 048
     Dates: start: 20140512, end: 20140512
  2. EFEXOR 75 MG [Suspect]
     Dosage: 375 MILLIGRAM DAILY;
     Route: 048
     Dates: start: 20140512, end: 20140512
  3. DEPAKIN CHRONO 300 MG [Suspect]
     Dosage: 900 MILLIGRAM DAILY;
     Route: 048
     Dates: start: 20140512, end: 20140512
  4. EN 1 MG/ML ORAL DROPS, SOLUTION (ABBOT SRL) (ATC N05BA) [Suspect]
     Dosage: 5 MILLIGRAM DAILY;
     Route: 048
     Dates: start: 20140512, end: 20140512

REACTIONS (1)
  - Drug abuse [Not Recovered/Not Resolved]
